FAERS Safety Report 26160625 (Version 1)
Quarter: 2025Q4

REPORT INFORMATION
  Report Type: Spontaneous
  Country: IL (occurrence: None)
  Receive Date: 20251216
  Receipt Date: 20251216
  Transmission Date: 20260117
  Serious: Yes (Hospitalization)
  Sender: UCB
  Company Number: IL-UCBSA-2025079537

PATIENT
  Age: 16 Year

DRUGS (1)
  1. FINTEPLA [Suspect]
     Active Substance: FENFLURAMINE
     Indication: Lennox-Gastaut syndrome
     Dosage: 0.25 MILLIGRAM, 2X/DAY (BID)

REACTIONS (1)
  - Restlessness [Recovered/Resolved]
